FAERS Safety Report 8779212 (Version 4)
Quarter: 2013Q3

REPORT INFORMATION
  Report Type: Spontaneous
  Country: MX (occurrence: MX)
  Receive Date: 20120911
  Receipt Date: 20130709
  Transmission Date: 20140515
  Serious: No
  Sender: FDA-Public Use
  Company Number: MX-ABBOTT-12P-107-0977908-00

PATIENT
  Age: 51 Year
  Sex: Male
  Weight: 59 kg

DRUGS (3)
  1. HUMIRA [Suspect]
     Indication: ANKYLOSING SPONDYLITIS
     Route: 058
     Dates: start: 20120515
  2. ARCOXIA [Concomitant]
     Indication: ANKYLOSING SPONDYLITIS
     Dates: start: 2006
  3. TRIXILEM [Concomitant]
     Indication: ANKYLOSING SPONDYLITIS
     Dosage: 2.5MG; 10MG A WEEK
     Dates: start: 2006

REACTIONS (3)
  - Aphasia [Not Recovered/Not Resolved]
  - Hallucination [Not Recovered/Not Resolved]
  - Anosmia [Recovered/Resolved]
